FAERS Safety Report 4930988-1 (Version None)
Quarter: 2006Q1

REPORT INFORMATION
  Report Type: 
  Country: None (occurrence: None)
  Receive Date: 20060227
  Receipt Date: 20060216
  Transmission Date: 20060701
  Serious: Yes (Hospitalization)
  Sender: FDA-Public Use
  Company Number: 2006021345

PATIENT
  Age: 92 Year
  Sex: Female
  Weight: 63 kg

DRUGS (13)
  1. FLUCONAZOLE [Suspect]
     Indication: ILL-DEFINED DISORDER
     Dosage: 1 DOSE FORM (1 IN 1 D), ORAL
     Route: 048
     Dates: start: 20060123, end: 20060130
  2. LASILIX - SLOW RELEASE (FUROSEMIDE) [Suspect]
     Indication: ILL-DEFINED DISORDER
     Dosage: 1 DOSE FORM (1 IN 1 D), ORAL
     Route: 048
     Dates: start: 20060119, end: 20060129
  3. OMEPRAZOLE [Suspect]
     Indication: ILL-DEFINED DISORDER
     Dosage: 1 DOSE FORM (20 MG, 1 IN 1 D), ORAL
     Route: 048
     Dates: start: 20060119, end: 20060130
  4. PYOSTACINE (PRISTINAMYCIN) [Suspect]
     Indication: ILL-DEFINED DISORDER
     Dosage: 2 GRAM (500 MG, 1 IN 1 D), ORAL
     Route: 048
     Dates: start: 20060127, end: 20060130
  5. BUDESONIDE [Concomitant]
  6. ATHYMIL (MIANSERIN HYDROCHLORIDE) [Concomitant]
  7. CETORNAN (ORNITHINE OXOGLURATE) [Concomitant]
  8. NITROGLYCERIN [Concomitant]
  9. FORADIL [Concomitant]
  10. ASPIRIN [Concomitant]
  11. AMYCOR (BIFONAZOLE) [Concomitant]
  12. AERIUS (DESLORATADINE) [Concomitant]
  13. UNSPECIFIED TREATMNET (ALL OTHER THERAPEUTIC PRODUCTS) [Concomitant]

REACTIONS (4)
  - FALL [None]
  - GASTROINTESTINAL HAEMORRHAGE [None]
  - MELAENA [None]
  - THROMBOCYTOPENIA [None]
